FAERS Safety Report 9009662 (Version 3)
Quarter: 2013Q1

REPORT INFORMATION
  Report Type: Spontaneous
  Country: US (occurrence: US)
  Receive Date: 20130110
  Receipt Date: 20130124
  Transmission Date: 20140127
  Serious: Yes (Other)
  Sender: FDA-Public Use
  Company Number: US-PFIZER INC-2013011259

PATIENT
  Age: 41 Year
  Sex: Female
  Weight: 93 kg

DRUGS (6)
  1. LYRICA [Suspect]
     Indication: FIBROMYALGIA
     Dosage: 50 MG, 2X/DAY
  2. LYRICA [Suspect]
     Dosage: 75 MG, 3X/DAY
  3. LYRICA [Suspect]
     Dosage: 100 MG, 3X/DAY
  4. LYRICA [Suspect]
     Dosage: 200 MG, 2X/DAY
     Dates: end: 201301
  5. CELEBREX [Suspect]
     Indication: FIBROMYALGIA
     Dosage: 200 MG, DAILY
  6. BACLOFEN [Concomitant]
     Indication: INFLAMMATION
     Dosage: 20 MG, 3X/DAY

REACTIONS (3)
  - Road traffic accident [Unknown]
  - Nerve compression [Unknown]
  - Pain [Not Recovered/Not Resolved]
